FAERS Safety Report 4785446-4 (Version None)
Quarter: 2005Q4

REPORT INFORMATION
  Report Type: 
  Country: None (occurrence: None)
  Receive Date: 20051003
  Receipt Date: 20050712
  Transmission Date: 20060501
  Serious: Yes (Other)
  Sender: FDA-Public Use
  Company Number: US-BRISTOL-MYERS SQUIBB COMPANY-13034418

PATIENT
  Age: 16 Year
  Sex: Male

DRUGS (2)
  1. BUSPAR [Suspect]
     Indication: ANXIETY DISORDER
     Dosage: DOSE VALUE:  25 OR 30 MG DAILY.  DURATION OF THERAPY:  1 OR 2 YEARS.
     Dates: start: 20040101
  2. STRATTERA [Concomitant]

REACTIONS (1)
  - MYOCLONIC EPILEPSY [None]
